FAERS Safety Report 13394485 (Version 2)
Quarter: 2017Q2

REPORT INFORMATION
  Report Type: Spontaneous
  Country: FR (occurrence: FR)
  Receive Date: 20170403
  Receipt Date: 20170404
  Transmission Date: 20170830
  Serious: Yes (Hospitalization, Other)
  Sender: FDA-Public Use
  Company Number: FR-009507513-1703FRA013355

PATIENT
  Age: 73 Year
  Sex: Male

DRUGS (1)
  1. PEMBROLIZUMAB. [Suspect]
     Active Substance: PEMBROLIZUMAB
     Indication: METASTATIC MALIGNANT MELANOMA
     Dosage: 10 MG/KG/DAY, Q3W

REACTIONS (3)
  - Fulminant type 1 diabetes mellitus [Not Recovered/Not Resolved]
  - Peripheral artery thrombosis [Recovered/Resolved]
  - Aortic thrombosis [Recovered/Resolved]
